FAERS Safety Report 9528910 (Version 1)
Quarter: 2013Q1

REPORT INFORMATION
  Report Type: Spontaneous
  Country: US (occurrence: None)
  Receive Date: 20130320
  Receipt Date: 20130320
  Transmission Date: 20140127
  Serious: Yes (Other)
  Sender: FDA-Public Use
  Company Number: EUS-2013-00006

PATIENT
  Sex: Female

DRUGS (1)
  1. ERWINAZE (ASPARAGINASE) [Suspect]
     Indication: PRODUCT USED FOR UNKNOWN INDICATION
     Dosage: SIX TREATMENTS OR LESS
     Dates: end: 20130102

REACTIONS (1)
  - Unevaluable event [None]
